FAERS Safety Report 5599172-5 (Version None)
Quarter: 2008Q1

REPORT INFORMATION
  Report Type: 
  Country: None (occurrence: None)
  Receive Date: 20080117
  Receipt Date: 20080104
  Transmission Date: 20080703
  Serious: Yes (Other)
  Sender: FDA-Public Use
  Company Number: CIO08000140

PATIENT
  Age: 22 Year
  Sex: Male

DRUGS (1)
  1. NYQUIL COLD/FLU, PSEUDOEPHEDRINE FREE (PARACETAMOL 325 MG, DEXTROMETHO [Suspect]
     Dosage: 2 LIQCAP, 1 ONLY, ORAL
     Route: 048
     Dates: start: 20080103, end: 20080103

REACTIONS (10)
  - ABNORMAL BEHAVIOUR [None]
  - AGITATION [None]
  - ANXIETY [None]
  - DISORIENTATION [None]
  - DYSPNOEA [None]
  - FEELING ABNORMAL [None]
  - RESTLESSNESS [None]
  - STRESS [None]
  - TREMOR [None]
  - VOMITING [None]
